FAERS Safety Report 17715394 (Version 1)
Quarter: 2020Q2

REPORT INFORMATION
  Report Type: Spontaneous
  Country: AU (occurrence: AU)
  Receive Date: 20200427
  Receipt Date: 20200427
  Transmission Date: 20200714
  Serious: Yes (Hospitalization)
  Sender: FDA-Public Use
  Company Number: AU-PFIZER INC-2020016683

PATIENT
  Age: 48 Year
  Sex: Female

DRUGS (1)
  1. XELJANZ [Suspect]
     Active Substance: TOFACITINIB CITRATE
     Indication: RHEUMATOID ARTHRITIS
     Dosage: 5 MG, 2X/DAY (BD)
     Dates: start: 20190201

REACTIONS (5)
  - Condition aggravated [Not Recovered/Not Resolved]
  - Headache [Unknown]
  - Photosensitivity reaction [Not Recovered/Not Resolved]
  - Lung disorder [Unknown]
  - Migraine [Not Recovered/Not Resolved]
